FAERS Safety Report 4981806-7 (Version None)
Quarter: 2006Q2

REPORT INFORMATION
  Report Type: 
  Country: None (occurrence: None)
  Receive Date: 20060425
  Receipt Date: 20060310
  Transmission Date: 20061013
  Serious: Yes (Life-Threatening, Hospitalization)
  Sender: FDA-Public Use
  Company Number: JP-JPN-A200600917

PATIENT
  Age: 32 Year
  Sex: Male
  Weight: 76 kg

DRUGS (4)
  1. PAXIL [Suspect]
     Indication: OBSESSIVE-COMPULSIVE DISORDER
     Route: 048
     Dates: start: 20060106, end: 20060223
  2. CONTOMIN [Concomitant]
     Dosage: 100MG PER DAY
     Route: 048
  3. FLUNITRAZEPAM [Concomitant]
  4. LEVOMEPROMAZINE [Concomitant]

REACTIONS (8)
  - ANXIETY [None]
  - HALLUCINATION [None]
  - HALLUCINATION, AUDITORY [None]
  - INSOMNIA [None]
  - INTENTIONAL SELF-INJURY [None]
  - IRRITABILITY [None]
  - POLYDIPSIA [None]
  - VOMITING [None]
